FAERS Safety Report 7786722-3 (Version None)
Quarter: 2011Q3

REPORT INFORMATION
  Report Type: 
  Country: None (occurrence: None)
  Receive Date: 20110929
  Receipt Date: 20110927
  Transmission Date: 20111222
  Serious: Yes (Hospitalization, Congenital Anomaly, Other)
  Sender: FDA-Public Use
  Company Number: US-PFIZER INC-2011159344

PATIENT
  Sex: Male

DRUGS (4)
  1. ZOLOFT [Suspect]
     Indication: DEPRESSION
     Dosage: 75 MG, 1X/DAY
     Route: 064
  2. ZOLOFT [Suspect]
     Dosage: 25 MG, 1X/DAY
     Route: 064
  3. ZOLOFT [Suspect]
     Dosage: 100 MG, 1X/DAY
     Route: 064
  4. ZOLOFT [Suspect]
     Dosage: 50 MG, 1X/DAY
     Route: 064

REACTIONS (10)
  - TRICUSPID VALVE INCOMPETENCE [None]
  - VENTRICULAR SEPTAL DEFECT [None]
  - MATERNAL EXPOSURE DURING PREGNANCY [None]
  - MITRAL VALVE INCOMPETENCE [None]
  - SINUS BRADYCARDIA [None]
  - ATRIAL SEPTAL DEFECT [None]
  - CARDIOMEGALY [None]
  - DILATATION VENTRICULAR [None]
  - LEFT ATRIAL DILATATION [None]
  - PULMONARY VALVE INCOMPETENCE [None]
